FAERS Safety Report 24385222 (Version 2)
Quarter: 2024Q4

REPORT INFORMATION
  Report Type: Spontaneous
  Country: GB (occurrence: GB)
  Receive Date: 20241001
  Receipt Date: 20241105
  Transmission Date: 20250114
  Serious: Yes (Hospitalization, Other)
  Sender: BAXTER
  Company Number: GB-LDELTA-NLLD0004751

PATIENT
  Age: 43 Year
  Sex: Male

DRUGS (9)
  1. DOXORUBICIN [Interacting]
     Active Substance: DOXORUBICIN
     Dosage: UNK, (STOP DATE: 2011)
     Route: 065
     Dates: start: 20100326
  2. CYCLOPHOSPHAMIDE [Interacting]
     Active Substance: CYCLOPHOSPHAMIDE
     Dosage: UNK, (STOP DATE: 2011)
     Route: 065
     Dates: start: 20100326
  3. CLOZAPINE [Suspect]
     Active Substance: CLOZAPINE
     Indication: Schizophrenia
     Dosage: 600 MG, ONCE A DAY, (15 MG MANE), AUTHORIZATION NUMBER: PL 32553, MAH: LEYDEN DELTA B.V.
     Route: 065
     Dates: start: 20070510
  4. RITUXIMAB [Interacting]
     Active Substance: RITUXIMAB
     Dosage: UNK, (STOP DATE: 2011)
     Route: 065
     Dates: start: 20100326
  5. VINCRISTINE [Interacting]
     Active Substance: VINCRISTINE
     Dosage: UNK, (STOP DATE: 2011)
     Route: 065
  6. PREDNISOLONE [Interacting]
     Active Substance: PREDNISOLONE
     Dosage: UNK, (STOP DATE: 2011)
     Route: 065
     Dates: start: 20100326
  7. LANSOPRAZOLE [Concomitant]
     Active Substance: LANSOPRAZOLE
     Dosage: 15 MG, ONCE A DAY
     Route: 065
  8. VITAMIN B12 [Concomitant]
     Active Substance: CYANOCOBALAMIN
     Dosage: UNK, EVERY 3/12, (START DATE: SINCE 2007)
     Route: 065
  9. AMISULPRIDE [Concomitant]
     Active Substance: AMISULPRIDE
     Dosage: 400 MG, ONCE A DAY, (START DATE: SINCE 2005)
     Route: 065

REACTIONS (4)
  - Diffuse large B-cell lymphoma [Not Recovered/Not Resolved]
  - Non-Hodgkin^s lymphoma unspecified histology indolent stage IV [Not Recovered/Not Resolved]
  - Neutropenia [Recovered/Resolved]
  - Leukopenia [Recovered/Resolved]

NARRATIVE: CASE EVENT DATE: 20100630
